FAERS Safety Report 12573555 (Version 1)
Quarter: 2016Q3

REPORT INFORMATION
  Report Type: Spontaneous
  Country: PL (occurrence: PL)
  Receive Date: 20160720
  Receipt Date: 20160720
  Transmission Date: 20161109
  Serious: Yes (Other)
  Sender: FDA-Public Use
  Company Number: PL-TEVA-675324ACC

PATIENT
  Age: 65 Year
  Sex: Male
  Weight: 67 kg

DRUGS (4)
  1. OXALIPLATINE KABI [Suspect]
     Active Substance: OXALIPLATIN
     Indication: BREAST CANCER
     Dosage: 144 GRAM DAILY;
     Route: 042
     Dates: start: 20160202
  2. LEUCOVORIN. [Suspect]
     Active Substance: LEUCOVORIN
     Indication: BREAST CANCER
     Route: 042
     Dates: start: 20160202
  3. FLUOROURACIL ACCORD [Suspect]
     Active Substance: FLUOROURACIL
     Indication: BREAST CANCER
     Dosage: 680 GRAM DAILY;
     Route: 040
     Dates: start: 20160202
  4. FLUOROURACIL ACCORD [Suspect]
     Active Substance: FLUOROURACIL
     Dosage: 1020 GRAM DAILY;
     Route: 041
     Dates: start: 20160202

REACTIONS (1)
  - Neutropenia [Unknown]

NARRATIVE: CASE EVENT DATE: 20160301
